FAERS Safety Report 7832599-7 (Version None)
Quarter: 2011Q4

REPORT INFORMATION
  Report Type: 
  Country: None (occurrence: None)
  Receive Date: 20111024
  Receipt Date: 20081014
  Transmission Date: 20120403
  Serious: No
  Sender: FDA-Public Use
  Company Number: US-BIOGENIDEC-2008BI027467

PATIENT
  Sex: Female

DRUGS (2)
  1. COPAXONE [Concomitant]
     Indication: MULTIPLE SCLEROSIS
     Dates: start: 20050101
  2. TYSABRI [Suspect]
     Indication: MULTIPLE SCLEROSIS
     Route: 042
     Dates: start: 20080801, end: 20110901

REACTIONS (20)
  - DEPRESSED MOOD [None]
  - LOSS OF CONTROL OF LEGS [None]
  - INSOMNIA [None]
  - HYPOAESTHESIA [None]
  - TREMOR [None]
  - BALANCE DISORDER [None]
  - JOINT RANGE OF MOTION DECREASED [None]
  - MUSCLE TIGHTNESS [None]
  - DRUG INEFFECTIVE [None]
  - GAIT DISTURBANCE [None]
  - SENSATION OF HEAVINESS [None]
  - MIDDLE INSOMNIA [None]
  - FUNGAL SKIN INFECTION [None]
  - FATIGUE [None]
  - PSYCHOMOTOR HYPERACTIVITY [None]
  - AGGRESSION [None]
  - STRESS [None]
  - VULVOVAGINAL MYCOTIC INFECTION [None]
  - CONSTIPATION [None]
  - MUSCULOSKELETAL DISORDER [None]
